FAERS Safety Report 4874886-0 (Version None)
Quarter: 2006Q1

REPORT INFORMATION
  Report Type: 
  Country: None (occurrence: None)
  Receive Date: 20060104
  Receipt Date: 20051219
  Transmission Date: 20060701
  Serious: Yes (Hospitalization)
  Sender: FDA-Public Use
  Company Number: 220494

PATIENT
  Age: 36 Year
  Sex: Female
  Weight: 79.4 kg

DRUGS (1)
  1. HERCEPTIN [Suspect]
     Indication: BREAST CANCER METASTATIC
     Dosage: 160 MG, 1/WEEK, INTRAVENOUS
     Route: 042
     Dates: start: 20051206

REACTIONS (2)
  - NEPHROLITHIASIS [None]
  - PREGNANCY TEST FALSE POSITIVE [None]
